FAERS Safety Report 7215155-3 (Version None)
Quarter: 2011Q1

REPORT INFORMATION
  Report Type: 
  Country: None (occurrence: None)
  Receive Date: 20110107
  Receipt Date: 20100920
  Transmission Date: 20110831
  Serious: No
  Sender: FDA-Public Use
  Company Number: A0882095A

PATIENT
  Age: 75 Year
  Sex: Male

DRUGS (6)
  1. METFORMIN [Concomitant]
  2. COUMADIN [Concomitant]
  3. NIASPAN [Concomitant]
  4. TRICOR [Concomitant]
  5. LOVAZA [Suspect]
     Indication: BLOOD CHOLESTEROL INCREASED
     Dosage: 2CAP TWICE PER DAY
     Route: 048
     Dates: start: 20090101
  6. DIGOXIN [Concomitant]

REACTIONS (2)
  - BEDRIDDEN [None]
  - BACK PAIN [None]
